FAERS Safety Report 10334818 (Version 1)
Quarter: 2014Q3

REPORT INFORMATION
  Report Type: Spontaneous
  Country: US (occurrence: None)
  Receive Date: 20140721
  Receipt Date: 20140721
  Transmission Date: 20150326
  Serious: Yes (Other)
  Sender: FDA-Public Use
  Company Number: US-H14001-14-00256

PATIENT
  Age: 52 Year
  Sex: Male

DRUGS (6)
  1. SPIRONOLACTONE (SPIRONOLACTONE) (SPIRONOLACTONE) [Concomitant]
     Active Substance: SPIRONOLACTONE
  2. LISINOPRIL (LISINOPRIL) (UNKNOWN) (LISINOPRIL) [Suspect]
     Active Substance: LISINOPRIL
     Indication: PRODUCT USED FOR UNKNOWN INDICATION
  3. METOPROLOL (METOPROLOL) (METOPROLOL) [Concomitant]
     Active Substance: METOPROLOL
  4. ASPIRIN (ACETYLSALICYLIC ACID) (ACETYLSALICYLIC ACID) [Concomitant]
     Active Substance: ASPIRIN
  5. FUROSEMIDE (FUROSEMDIE) (FUROSEMIDE) [Concomitant]
  6. ATORVASTATIN (ATORVASTATIN) (ATORVASTATIN) [Concomitant]
     Active Substance: ATORVASTATIN

REACTIONS (4)
  - Diarrhoea [None]
  - Swollen tongue [None]
  - Pharyngeal oedema [None]
  - Abdominal discomfort [None]
